FAERS Safety Report 7691540-0 (Version None)
Quarter: 2011Q3

REPORT INFORMATION
  Report Type: 
  Country: None (occurrence: None)
  Receive Date: 20110818
  Receipt Date: 20110812
  Transmission Date: 20111222
  Serious: Yes (Other)
  Sender: FDA-Public Use
  Company Number: GB-B.I. PHARMACEUTICALS,INC./RIDGEFIELD-2011-UK-00872UK

PATIENT
  Age: 80 Year
  Sex: Female
  Weight: 62 kg

DRUGS (8)
  1. EPROSARTAN [Concomitant]
     Dosage: 600 MG
  2. MELOXICAM [Concomitant]
     Dosage: 15 MG
  3. ACETAMINOPHEN AND CODEINE PHOSPHATE [Concomitant]
  4. FUROSEMIDE [Concomitant]
     Dosage: 20 MG
  5. IBANDRONATE SODIUM [Concomitant]
     Dosage: 150MG 1/1 MONTHS
  6. PL 06831/0107 AMLOSTIN TABLETS 10MG [Concomitant]
     Dosage: 10 MG
  7. PRADAXA [Suspect]
     Dosage: 150MG
     Route: 048
     Dates: start: 20110614
  8. WARFARIN SODIUM [Concomitant]
     Dosage: 1MG

REACTIONS (1)
  - DEEP VEIN THROMBOSIS [None]
